FAERS Safety Report 6880971-4 (Version None)
Quarter: 2010Q2

REPORT INFORMATION
  Report Type: 
  Country: None (occurrence: None)
  Receive Date: 20100630
  Receipt Date: 20100113
  Transmission Date: 20101027
  Serious: Yes (Other)
  Sender: FDA-Public Use
  Company Number: 2009315636

PATIENT
  Age: 30 Year
  Sex: Female
  Weight: 56.7 kg

DRUGS (10)
  1. ZITHROMAX [Suspect]
     Indication: LYME DISEASE
     Dosage: 500 MG, 1X/DAY, INTRAVENOUS
     Route: 042
  2. ROCEPHIN [Suspect]
  3. ALPHA LIPOIC ACID (THIOCTIC ACID) [Concomitant]
  4. ASPIRIN C (ACETYLICYLIC ACID, ASCORBIC ACID) [Concomitant]
  5. MILK THISTLE (SILYMARIN) [Concomitant]
  6. MULTIVITAMINS (ASCORBIC ACID, ERGOCALCIFEROL, FOLIC ACID, NICOTINAMIDE [Concomitant]
  7. OMEGA (CONVALLARIA MAJALIS, CRATAEGUS, PROXYPHYLLINE) [Concomitant]
  8. SUPER 8 (AMINO ACIDS NOS, MINERALS NOS, VITAMINS NOS) [Concomitant]
  9. GABAPENTIN [Concomitant]
  10. LEVOTHYROXINE SODIUM [Concomitant]

REACTIONS (1)
  - PALPITATIONS [None]
